FAERS Safety Report 8164555-6 (Version None)
Quarter: 2012Q1

REPORT INFORMATION
  Report Type: 
  Country: None (occurrence: None)
  Receive Date: 20120226
  Receipt Date: 20120222
  Transmission Date: 20120608
  Serious: Yes (Life-Threatening, Disabling, Other)
  Sender: FDA-Public Use
  Company Number: GB-BRISTOL-MYERS SQUIBB COMPANY-16411332

PATIENT
  Age: 47 Year
  Sex: Female

DRUGS (10)
  1. GLICLAZIDE [Concomitant]
  2. FLUTICASONE PROPIONATE/SALMETEROL [Concomitant]
  3. CALCIUM + VITAMIN D [Concomitant]
     Dosage: CALCIUM+ VITAMIN D 3
  4. LOSARTAN POTASSIUM [Concomitant]
  5. SIMVASTATIN [Concomitant]
  6. ONGLYZA [Suspect]
     Indication: TYPE 2 DIABETES MELLITUS
     Route: 048
     Dates: start: 20120128
  7. VENTOLIN [Concomitant]
  8. RANITIDINE [Concomitant]
  9. METFORMIN HCL [Concomitant]
  10. LEVOTHYROXINE SODIUM [Concomitant]

REACTIONS (1)
  - DIARRHOEA [None]
